FAERS Safety Report 26082990 (Version 1)
Quarter: 2025Q4

REPORT INFORMATION
  Report Type: Spontaneous
  Country: JP (occurrence: JP)
  Receive Date: 20251124
  Receipt Date: 20251124
  Transmission Date: 20260118
  Serious: Yes (Other)
  Sender: UCB
  Company Number: JP-UCBJ-CD202515328UCBPHAPROD

PATIENT

DRUGS (1)
  1. FINTEPLA [Suspect]
     Active Substance: FENFLURAMINE
     Indication: Lennox-Gastaut syndrome
     Dosage: INITIAL DOSES AT 0.05, 0.07, 0.1, AND 0.15MG/KG/DAY

REACTIONS (13)
  - Epilepsy [Unknown]
  - Tricuspid valve incompetence [Unknown]
  - Mitral valve incompetence [Unknown]
  - Somnolence [Unknown]
  - Decreased appetite [Unknown]
  - Diarrhoea [Unknown]
  - Faeces soft [Unknown]
  - Weight decreased [Unknown]
  - Decreased activity [Unknown]
  - Malaise [Unknown]
  - Drug ineffective [Unknown]
  - Off label use [Unknown]
  - Prescribed underdose [Unknown]
